FAERS Safety Report 18823536 (Version 2)
Quarter: 2021Q1

REPORT INFORMATION
  Report Type: Spontaneous
  Country: US (occurrence: US)
  Receive Date: 20210202
  Receipt Date: 20210212
  Transmission Date: 20210419
  Serious: Yes (Hospitalization, Other)
  Sender: FDA-Public Use
  Company Number: US-BAYER-2021-041798

PATIENT
  Age: 76 Year
  Sex: Female

DRUGS (1)
  1. ADEMPAS [Suspect]
     Active Substance: RIOCIGUAT
     Indication: PULMONARY HYPERTENSION
     Dosage: 1.5 MG, TID
     Route: 048
     Dates: start: 20180213

REACTIONS (7)
  - Hypotension [Recovered/Resolved]
  - Sepsis [Recovered/Resolved]
  - Abdominal pain [Recovered/Resolved]
  - Diverticulitis [Recovered/Resolved]
  - Hypoxia [Recovered/Resolved]
  - Liver abscess [Recovered/Resolved]
  - Pyrexia [Recovered/Resolved]

NARRATIVE: CASE EVENT DATE: 20201227
